FAERS Safety Report 6386524-9 (Version None)
Quarter: 2009Q4

REPORT INFORMATION
  Report Type: 
  Country: None (occurrence: None)
  Receive Date: 20091002
  Receipt Date: 20090402
  Transmission Date: 20100525
  Serious: No
  Sender: FDA-Public Use
  Company Number: US-ASTRAZENECA-2009UW07597

PATIENT
  Age: 68 Year
  Sex: Female

DRUGS (1)
  1. ARIMIDEX [Suspect]
     Route: 048
     Dates: start: 20040601

REACTIONS (4)
  - CONSTIPATION [None]
  - HOT FLUSH [None]
  - NIGHT SWEATS [None]
  - WEIGHT DECREASED [None]
